FAERS Safety Report 11445297 (Version 2)
Quarter: 2015Q4

REPORT INFORMATION
  Report Type: Spontaneous
  Country: GB (occurrence: GB)
  Receive Date: 20150902
  Receipt Date: 20151002
  Transmission Date: 20160304
  Serious: Yes (Other)
  Sender: FDA-Public Use
  Company Number: GB-AXELLIA-000853

PATIENT
  Age: 66 Year
  Sex: Male

DRUGS (22)
  1. ALLOPURINOL. [Concomitant]
     Active Substance: ALLOPURINOL
  2. BENZYLPENICILLIN [Concomitant]
     Active Substance: PENICILLIN G
  3. GABAPENTIN. [Concomitant]
     Active Substance: GABAPENTIN
  4. HYOSCINE [Concomitant]
     Active Substance: SCOPOLAMINE
  5. DILTIAZEM [Concomitant]
     Active Substance: DILTIAZEM
  6. ERTAPENEM [Concomitant]
     Active Substance: ERTAPENEM
  7. LACTULOSE. [Concomitant]
     Active Substance: LACTULOSE
  8. OMEPRAZOLE. [Concomitant]
     Active Substance: OMEPRAZOLE
  9. PARACETAMOL [Concomitant]
     Active Substance: ACETAMINOPHEN
  10. SODIUM BICARBONATE. [Concomitant]
     Active Substance: SODIUM BICARBONATE
  11. THIAMINE. [Concomitant]
     Active Substance: THIAMINE
  12. MACROGOL [Concomitant]
     Active Substance: POLYETHYLENE GLYCOLS
  13. LANSOPRAZOLE. [Concomitant]
     Active Substance: LANSOPRAZOLE
  14. COLISTIN [Suspect]
     Active Substance: COLISTIN
     Indication: OSTEOMYELITIS
     Dosage: 2 MEGA UNITS THREE TIMES A DAY
     Route: 042
     Dates: start: 20150713, end: 20150723
  15. MIRTAZAPINE. [Suspect]
     Active Substance: MIRTAZAPINE
     Indication: DEPRESSION
     Dosage: NIGHT
     Route: 048
     Dates: start: 20150709, end: 20150723
  16. ATORVASTATIN [Concomitant]
     Active Substance: ATORVASTATIN
  17. FLUCLOXACILLIN [Concomitant]
     Active Substance: FLUCLOXACILLIN
  18. INDAPAMIDE. [Concomitant]
     Active Substance: INDAPAMIDE
  19. IRBESARTAN. [Concomitant]
     Active Substance: IRBESARTAN
  20. DALTEPARIN [Concomitant]
     Active Substance: DALTEPARIN
  21. TIGECYCLINE. [Concomitant]
     Active Substance: TIGECYCLINE
  22. NICOTINAMIDE/RIBOFLAVIN/THIAMINE HYDROCHLORIDE [Concomitant]

REACTIONS (2)
  - Myoclonus [Recovering/Resolving]
  - Tremor [Recovering/Resolving]

NARRATIVE: CASE EVENT DATE: 20150722
